FAERS Safety Report 8823816 (Version 3)
Quarter: 2012Q4

REPORT INFORMATION
  Report Type: 
  Country: US (occurrence: US)
  Receive Date: 20121003
  Receipt Date: 20121221
  Transmission Date: 20130627
  Serious: Yes (Hospitalization, Other)
  Sender: FDA-Public Use
  Company Number: US-PFIZER INC-2012240694

PATIENT
  Age: 65 Year
  Sex: Female
  Weight: 62.13 kg

DRUGS (17)
  1. REVATIO [Suspect]
     Indication: PULMONARY HYPERTENSION
     Dosage: 40 mg, 3x/day
     Route: 048
     Dates: start: 2009
  2. REVATIO [Suspect]
     Indication: FIBROSIS
  3. PRAVASTATIN [Concomitant]
     Indication: HIGH CHOLESTEROL
     Dosage: 60 mg, 1x/day
  4. DIAZEPAM [Concomitant]
     Indication: SLEEP PROBLEM
     Dosage: 1 mg, 2x/day
  5. GEMFIBROZIL [Concomitant]
     Indication: DIABETES
     Dosage: 600 mg, daily
  6. ATENOLOL [Concomitant]
     Indication: HEART DISORDER
     Dosage: 25 mg, daily
  7. TRAZODONE [Concomitant]
     Indication: SLEEP PROBLEM
     Dosage: 150 mg, daily
  8. AMITRIPTYLINE [Concomitant]
     Indication: SLEEP PROBLEM
     Dosage: 10 mg, daily
  9. EFFEXOR-XR [Concomitant]
     Indication: DEPRESSION
     Dosage: 150 mg, daily
  10. LEVOTHYROXINE [Concomitant]
     Indication: THYROID DISORDER
     Dosage: 50 ug, daily
  11. ASPIRIN [Concomitant]
     Dosage: 81 mg, daily
  12. LETAIRIS [Concomitant]
     Indication: PULMONARY HYPERTENSION
     Dosage: 10 mg, daily
  13. NIFEREX [Concomitant]
     Dosage: 150 mg, daily
  14. JANUVIA [Concomitant]
     Indication: DIABETES
     Dosage: 50 mg, daily
  15. HYDROCODONE [Concomitant]
     Indication: PAIN
     Dosage: 500 mg, 2x/day
  16. OMEPRAZOLE [Concomitant]
     Indication: GASTRIC DISORDER
     Dosage: 40 mg, daily
  17. LISINOPRIL [Concomitant]
     Indication: BLOOD PRESSURE HIGH
     Dosage: 10 mg, daily
     Route: 048

REACTIONS (7)
  - Haemoptysis [Not Recovered/Not Resolved]
  - Pneumonia [Recovered/Resolved]
  - Pulmonary oedema [Unknown]
  - Cough [Not Recovered/Not Resolved]
  - Malaise [Unknown]
  - Off label use [Unknown]
  - Off label use [Unknown]
